FAERS Safety Report 7699271-8 (Version None)
Quarter: 2011Q3

REPORT INFORMATION
  Report Type: 
  Country: None (occurrence: None)
  Receive Date: 20110819
  Receipt Date: 20101221
  Transmission Date: 20111222
  Serious: Yes (Death, Life-Threatening, Hospitalization)
  Sender: FDA-Public Use
  Company Number: US-AMGEN-USASP2010001503

PATIENT

DRUGS (3)
  1. CIPROFLOXACIN [Concomitant]
     Dosage: UNK
     Dates: start: 19910812, end: 19910822
  2. FLUDARABINE PHOSPHATE [Concomitant]
  3. NEUPOGEN [Suspect]
     Indication: CHEMOTHERAPY
     Dosage: UNK, QD
     Route: 058
     Dates: start: 19910812, end: 19910823

REACTIONS (4)
  - THROMBOCYTOPENIA [None]
  - PULMONARY HAEMORRHAGE [None]
  - PURPURA [None]
  - PULMONARY EMBOLISM [None]
